FAERS Safety Report 7232713-0 (Version None)
Quarter: 2011Q1

REPORT INFORMATION
  Report Type: 
  Country: None (occurrence: None)
  Receive Date: 20110119
  Receipt Date: 20110111
  Transmission Date: 20110831
  Serious: Yes (Other)
  Sender: FDA-Public Use
  Company Number: US-PFIZER INC-2011008058

PATIENT
  Sex: Female

DRUGS (2)
  1. RELPAX [Suspect]
     Dosage: UNK
  2. TOPAMAX [Suspect]
     Dosage: UNK

REACTIONS (1)
  - GASTRIC DISORDER [None]
